FAERS Safety Report 15543420 (Version 1)
Quarter: 2018Q4

REPORT INFORMATION
  Report Type: Spontaneous
  Country: US (occurrence: US)
  Receive Date: 20181023
  Receipt Date: 20181023
  Transmission Date: 20190205
  Serious: Yes (Other)
  Sender: FDA-Public Use
  Company Number: US-PURDUE PHARMA-USA-2018-0143469

PATIENT
  Sex: Male

DRUGS (3)
  1. OXYCONTIN [Suspect]
     Active Substance: OXYCODONE HYDROCHLORIDE
     Indication: MYELITIS TRANSVERSE
     Route: 065
  2. PERCOCET                           /00446701/ [Suspect]
     Active Substance: ACETAMINOPHEN\OXYCODONE HYDROCHLORIDE\OXYCODONE TEREPHTHALATE
     Indication: MYELITIS TRANSVERSE
     Route: 065
  3. FENTANYL                           /00174602/ [Suspect]
     Active Substance: FENTANYL
     Indication: MYELITIS TRANSVERSE
     Route: 065

REACTIONS (3)
  - Drug tolerance increased [Unknown]
  - Inadequate analgesia [Unknown]
  - Drug dependence [Recovered/Resolved]
